FAERS Safety Report 6375884-0 (Version None)
Quarter: 2009Q3

REPORT INFORMATION
  Report Type: 
  Country: None (occurrence: None)
  Receive Date: 20090921
  Receipt Date: 20090908
  Transmission Date: 20100115
  Serious: Yes (Death)
  Sender: FDA-Public Use
  Company Number: B0593392A

PATIENT
  Age: 26 Day
  Sex: Female

DRUGS (5)
  1. ZIDOVUDINE [Suspect]
     Indication: ANTIVIRAL PROPHYLAXIS
     Dosage: 300 MG / TWICE PER DAY /
  2. TENOFOVIR DISOPROXIL FUMARATE [Suspect]
     Indication: ANTIVIRAL PROPHYLAXIS
     Dosage: ORAL
     Route: 048
  3. EMTRICITABINE (FORMULATION UNKNOWN) (EMTRICITABINE) [Suspect]
     Indication: ANTIVIRAL PROPHYLAXIS
     Dosage: ORAL
     Route: 048
  4. NEVIRAPINE [Concomitant]
  5. ZIDOVUDINE [Concomitant]

REACTIONS (5)
  - ANAEMIA [None]
  - CAESAREAN SECTION [None]
  - GASTROENTERITIS [None]
  - INTESTINAL OBSTRUCTION [None]
  - MATERNAL DRUGS AFFECTING FOETUS [None]
